FAERS Safety Report 11560085 (Version 3)
Quarter: 2015Q4

REPORT INFORMATION
  Report Type: Spontaneous
  Country: TW (occurrence: TW)
  Receive Date: 20150928
  Receipt Date: 20151109
  Transmission Date: 20160304
  Serious: Yes (Death, Other)
  Sender: FDA-Public Use
  Company Number: TW-ACTELION-A-CH2015-124565

PATIENT
  Age: 75 Year
  Sex: Male

DRUGS (1)
  1. TRACLEER [Suspect]
     Active Substance: BOSENTAN
     Indication: PULMONARY ARTERIAL HYPERTENSION
     Dosage: 125 MG, BID
     Route: 048
     Dates: start: 20050528, end: 20151102

REACTIONS (2)
  - Pancreatic carcinoma metastatic [Fatal]
  - Metastases to liver [Fatal]

NARRATIVE: CASE EVENT DATE: 201509
